FAERS Safety Report 6203970-4 (Version None)
Quarter: 2009Q2

REPORT INFORMATION
  Report Type: 
  Country: None (occurrence: None)
  Receive Date: 20090527
  Receipt Date: 20090522
  Transmission Date: 20091009
  Serious: Yes (Hospitalization)
  Sender: FDA-Public Use
  Company Number: B0572986A

PATIENT
  Sex: Female
  Weight: 55 kg

DRUGS (8)
  1. LAPATINIB [Suspect]
     Indication: BREAST CANCER
     Dosage: 1500MG PER DAY
     Route: 048
     Dates: start: 20081217
  2. PACLITAXEL [Suspect]
     Indication: BREAST CANCER
     Dosage: 80MGM2 WEEKLY
     Route: 042
     Dates: start: 20090129, end: 20090415
  3. ITOPRIDE [Concomitant]
     Route: 048
     Dates: start: 20090428, end: 20090506
  4. ALIBENDOL [Concomitant]
     Route: 048
     Dates: start: 20090428, end: 20090506
  5. REBAMIPIDE [Concomitant]
     Route: 048
     Dates: start: 20090428, end: 20090506
  6. ACETAMINOPHEN [Concomitant]
     Indication: MYALGIA
     Route: 048
     Dates: start: 20090428, end: 20090506
  7. FUROSEMIDE [Concomitant]
     Route: 048
     Dates: start: 20090428, end: 20090506
  8. GABAPENTIN [Concomitant]
     Indication: NEUROPATHY PERIPHERAL
     Route: 048
     Dates: start: 20090428, end: 20090506

REACTIONS (4)
  - ANAEMIA [None]
  - DIARRHOEA [None]
  - MYALGIA [None]
  - NEUROPATHY PERIPHERAL [None]
